FAERS Safety Report 7851759 (Version 2)
Quarter: 2012Q4

REPORT INFORMATION
  Report Type: 
  Country: SK (occurrence: SK)
  Receive Date: 20110311
  Receipt Date: 20121008
  Transmission Date: 20130627
  Serious: Yes (Death, Other)
  Sender: FDA-Public Use
  Company Number: SK-CELGENEUS-260-21880-11030254

PATIENT

DRUGS (11)
  1. REVLIMID [Suspect]
     Indication: MULTIPLE MYELOMA
     Route: 048
  2. DEXAMETHASONE [Concomitant]
     Indication: MULTIPLE MYELOMA
     Route: 065
  3. PREDNISONE [Concomitant]
     Indication: MULTIPLE MYELOMA
     Route: 065
  4. CYCLOPHOSPHAMID [Concomitant]
     Indication: MULTIPLE MYELOMA
     Route: 065
  5. LMWH [Concomitant]
     Indication: THROMBOSIS PROPHYLAXIS
     Route: 065
  6. WARFARIN [Concomitant]
     Indication: THROMBOSIS PROPHYLAXIS
     Route: 065
  7. ASA [Concomitant]
     Indication: THROMBOSIS PROPHYLAXIS
     Route: 065
  8. G-CSF [Concomitant]
     Indication: PROPHYLAXIS
     Route: 065
  9. PLATELETS [Concomitant]
     Indication: PROPHYLAXIS
     Route: 065
  10. MELPHALAN [Concomitant]
     Indication: MULTIPLE MYELOMA
     Route: 065
  11. BORTEZOMIB [Concomitant]
     Indication: MULTIPLE MYELOMA
     Route: 065

REACTIONS (11)
  - Cardiopulmonary failure [Fatal]
  - Renal failure [Fatal]
  - Plasma cell myeloma [Fatal]
  - Infection [Fatal]
  - Thrombosis [Unknown]
  - Neutropenia [Unknown]
  - Fatigue [Unknown]
  - Constipation [Unknown]
  - Infection [Unknown]
  - Thrombocytopenia [Unknown]
  - Asthenia [Unknown]
